FAERS Safety Report 11109856 (Version 4)
Quarter: 2015Q4

REPORT INFORMATION
  Report Type: Spontaneous
  Country: US (occurrence: US)
  Receive Date: 20150513
  Receipt Date: 20151118
  Transmission Date: 20160304
  Serious: No
  Sender: FDA-Public Use
  Company Number: US-PFIZER INC-2015155599

PATIENT
  Age: 37 Year
  Sex: Male
  Weight: 147 kg

DRUGS (1)
  1. NEURONTIN [Suspect]
     Active Substance: GABAPENTIN
     Indication: NERVE COMPRESSION
     Dosage: 400 MG, 3X/DAY
     Route: 048
     Dates: start: 2012

REACTIONS (6)
  - Drug hypersensitivity [Unknown]
  - Memory impairment [Unknown]
  - Visual impairment [Unknown]
  - Thinking abnormal [Unknown]
  - Vision blurred [Unknown]
  - Drug ineffective for unapproved indication [Unknown]
